FAERS Safety Report 11693745 (Version 1)
Quarter: 2015Q4

REPORT INFORMATION
  Report Type: Spontaneous
  Country: US (occurrence: US)
  Receive Date: 20151103
  Receipt Date: 20151103
  Transmission Date: 20160304
  Serious: No
  Sender: FDA-Public Use
  Company Number: US-AKRIMAX-TIR-04591

PATIENT
  Age: 89 Year
  Sex: Female
  Weight: 69.46 kg

DRUGS (2)
  1. TIROSINT [Suspect]
     Active Substance: LEVOTHYROXINE SODIUM
     Indication: HYPOTHYROIDISM
     Dosage: ONE 100MCG CAPSULE DAILY
     Route: 048
     Dates: start: 20150520
  2. TIROSINT [Suspect]
     Active Substance: LEVOTHYROXINE SODIUM
     Indication: HYPOTHYROIDISM
     Dosage: ONE 88MCG CAPSULE DAILY
     Route: 048
     Dates: start: 201507

REACTIONS (9)
  - Discomfort [Not Recovered/Not Resolved]
  - Rash erythematous [Not Recovered/Not Resolved]
  - Tremor [Unknown]
  - Malaise [Unknown]
  - Lip swelling [Unknown]
  - Dyspnoea [Not Recovered/Not Resolved]
  - Rash pruritic [Not Recovered/Not Resolved]
  - Oral pain [Unknown]
  - Palpitations [Unknown]

NARRATIVE: CASE EVENT DATE: 20150521
